FAERS Safety Report 21416145 (Version 1)
Quarter: 2022Q4

REPORT INFORMATION
  Report Type: Spontaneous
  Country: US (occurrence: US)
  Receive Date: 20221006
  Receipt Date: 20221006
  Transmission Date: 20230112
  Serious: No
  Sender: FDA-Public Use
  Company Number: US-ALLERGAN-2133506US

PATIENT
  Age: 46 Year
  Sex: Male

DRUGS (2)
  1. VRAYLAR [Suspect]
     Active Substance: CARIPRAZINE
     Indication: Post-traumatic stress disorder
     Dosage: 1 DF, QAM
     Dates: start: 2021
  2. VRAYLAR [Suspect]
     Active Substance: CARIPRAZINE
     Indication: Depression

REACTIONS (2)
  - Tinnitus [Unknown]
  - Off label use [Unknown]

NARRATIVE: CASE EVENT DATE: 20210917
